FAERS Safety Report 15619605 (Version 1)
Quarter: 2018Q4

REPORT INFORMATION
  Report Type: Report from Study
  Country: DE (occurrence: DE)
  Receive Date: 20181115
  Receipt Date: 20181115
  Transmission Date: 20190205
  Serious: Yes (Other)
  Sender: FDA-Public Use
  Company Number: DE-TAKEDA-2018MPI015857

PATIENT
  Age: 7 Decade
  Sex: Female
  Weight: 73 kg

DRUGS (14)
  1. BORTEZOMIB. [Suspect]
     Active Substance: BORTEZOMIB
     Indication: PLASMA CELL MYELOMA
     Dosage: 1.8 MG, QD
     Route: 065
     Dates: start: 20180801, end: 2018
  2. ADRIAMYCIN [Suspect]
     Active Substance: DOXORUBICIN HYDROCHLORIDE
     Indication: PLASMA CELL MYELOMA
     Dosage: 16 MG, UNK
     Route: 065
     Dates: start: 20180801, end: 2018
  3. ADRIAMYCIN [Suspect]
     Active Substance: DOXORUBICIN HYDROCHLORIDE
     Dosage: UNK
     Route: 065
     Dates: start: 201808
  4. DEXAMETHASONE. [Suspect]
     Active Substance: DEXAMETHASONE
     Dosage: 20 MG, UNK
     Route: 065
     Dates: start: 20180812, end: 2018
  5. BORTEZOMIB. [Suspect]
     Active Substance: BORTEZOMIB
     Dosage: 2.6 MG, UNK
     Route: 065
     Dates: start: 20180804, end: 2018
  6. ADRIAMYCIN [Suspect]
     Active Substance: DOXORUBICIN HYDROCHLORIDE
     Dosage: 16 MG, UNK
     Route: 065
     Dates: start: 20180804, end: 2018
  7. REVLIMID [Suspect]
     Active Substance: LENALIDOMIDE
     Dosage: 25 MG, UNK
     Route: 048
     Dates: start: 20180806, end: 2018
  8. DEXAMETHASONE. [Suspect]
     Active Substance: DEXAMETHASONE
     Indication: PLASMA CELL MYELOMA
     Dosage: 20 MG, UNK
     Route: 065
     Dates: start: 20180801, end: 2018
  9. DEXAMETHASONE. [Suspect]
     Active Substance: DEXAMETHASONE
     Dosage: UNK
     Route: 065
     Dates: start: 201808
  10. BORTEZOMIB. [Suspect]
     Active Substance: BORTEZOMIB
     Dosage: UNK
     Route: 065
     Dates: start: 201808
  11. DEXAMETHASONE. [Suspect]
     Active Substance: DEXAMETHASONE
     Dosage: 20 MG, UNK
     Route: 065
     Dates: start: 20180805, end: 2018
  12. REVLIMID [Suspect]
     Active Substance: LENALIDOMIDE
     Indication: PLASMA CELL MYELOMA
     Dosage: 25 MG, UNK
     Route: 048
     Dates: start: 20180801, end: 2018
  13. REVLIMID [Suspect]
     Active Substance: LENALIDOMIDE
     Dosage: 25 MG, UNK
     Route: 048
     Dates: start: 20180815, end: 2018
  14. REVLIMID [Suspect]
     Active Substance: LENALIDOMIDE
     Dosage: UNK
     Route: 048
     Dates: start: 201808, end: 2018

REACTIONS (2)
  - Haematotoxicity [Recovered/Resolved]
  - Thrombocytopenia [Recovered/Resolved]

NARRATIVE: CASE EVENT DATE: 20180807
